FAERS Safety Report 22023921 (Version 1)
Quarter: 2023Q1

REPORT INFORMATION
  Report Type: Spontaneous
  Country: US (occurrence: None)
  Receive Date: 20230223
  Receipt Date: 20230223
  Transmission Date: 20230417
  Serious: No
  Sender: FDA-Public Use
  Company Number: US-ROCHE-3026581

PATIENT
  Sex: Male

DRUGS (4)
  1. XOLAIR [Suspect]
     Active Substance: OMALIZUMAB
     Indication: Product used for unknown indication
     Dosage: LAST SHOT TAKEN WAS ON 17/DEC/2021
     Route: 065
     Dates: start: 201912
  2. PREDNISONE [Concomitant]
     Active Substance: PREDNISONE
  3. IRBESARTAN [Concomitant]
     Active Substance: IRBESARTAN
  4. VIVITROL [Concomitant]
     Active Substance: NALTREXONE

REACTIONS (4)
  - Urticaria [Unknown]
  - Hypotension [Unknown]
  - Chills [Unknown]
  - Dizziness [Unknown]
